FAERS Safety Report 7126855-8 (Version None)
Quarter: 2010Q4

REPORT INFORMATION
  Report Type: 
  Country: None (occurrence: None)
  Receive Date: 20101129
  Receipt Date: 20091019
  Transmission Date: 20110411
  Serious: No
  Sender: FDA-Public Use
  Company Number: US-PFIZER INC-2009286656

PATIENT
  Sex: Male
  Weight: 91.2 kg

DRUGS (4)
  1. VIAGRA [Suspect]
     Indication: ERECTILE DYSFUNCTION
     Dosage: 50 MG, AS NEEDED
     Dates: start: 20090301
  2. ALEVE (CAPLET) [Concomitant]
     Indication: BACK PAIN
     Dosage: UNK
  3. OXYCODONE [Concomitant]
     Indication: BACK PAIN
     Dosage: UNK
  4. ACETYLSALICYLIC ACID [Concomitant]
     Indication: BACK PAIN
     Dosage: UNK

REACTIONS (3)
  - ABDOMINAL DISCOMFORT [None]
  - DRUG INEFFECTIVE [None]
  - FLUSHING [None]
